FAERS Safety Report 4508883-1 (Version None)
Quarter: 2004Q4

REPORT INFORMATION
  Report Type: 
  Country: None (occurrence: None)
  Receive Date: 20041118
  Receipt Date: 20041109
  Transmission Date: 20050328
  Serious: Yes (Other)
  Sender: FDA-Public Use
  Company Number: US014281

PATIENT

DRUGS (1)
  1. PROVIGIL [Suspect]

REACTIONS (1)
  - CEREBRAL HAEMORRHAGE [None]
